FAERS Safety Report 9108680 (Version 2)
Quarter: 2013Q3

REPORT INFORMATION
  Report Type: Spontaneous
  Country: US (occurrence: US)
  Receive Date: 20130222
  Receipt Date: 20130719
  Transmission Date: 20140515
  Serious: Yes (Hospitalization)
  Sender: FDA-Public Use
  Company Number: US-BIOGENIDEC-2013BI012002

PATIENT
  Age: 47 Year
  Sex: Female

DRUGS (7)
  1. TYSABRI [Suspect]
     Indication: MULTIPLE SCLEROSIS
     Route: 042
     Dates: start: 20111011
  2. AVONEX [Concomitant]
     Indication: MULTIPLE SCLEROSIS
     Route: 030
     Dates: start: 20081017
  3. CYMBALTA [Concomitant]
  4. BENICAR [Concomitant]
  5. NUVIGIL [Concomitant]
  6. VICODIN [Concomitant]
  7. HCTZ [Concomitant]

REACTIONS (3)
  - Hiatus hernia [Unknown]
  - Diverticulum intestinal [Unknown]
  - Large intestine polyp [Recovered/Resolved]
